FAERS Safety Report 13634593 (Version 1)
Quarter: 2017Q2

REPORT INFORMATION
  Report Type: Spontaneous
  Country: US (occurrence: US)
  Receive Date: 20170531
  Receipt Date: 20170531
  Transmission Date: 20170830
  Serious: No
  Sender: FDA-Public Use
  Company Number: US-ASTELLAS-1640357

PATIENT
  Sex: Female
  Weight: 52.66 kg

DRUGS (4)
  1. ULORIC [Concomitant]
     Active Substance: FEBUXOSTAT
  2. TORSEMIDE. [Concomitant]
     Active Substance: TORSEMIDE
  3. TARCEVA [Suspect]
     Active Substance: ERLOTINIB HYDROCHLORIDE
     Indication: LUNG NEOPLASM MALIGNANT
     Route: 048
     Dates: start: 20130809
  4. ACUVERT [Concomitant]

REACTIONS (6)
  - Decreased appetite [Unknown]
  - Weight decreased [Unknown]
  - Skin fissures [Unknown]
  - Diarrhoea [Unknown]
  - Rash [Unknown]
  - Alopecia [Unknown]
